FAERS Safety Report 18360875 (Version 1)
Quarter: 2020Q4

REPORT INFORMATION
  Report Type: Spontaneous
  Country: US (occurrence: US)
  Receive Date: 20201008
  Receipt Date: 20201008
  Transmission Date: 20210114
  Serious: No
  Sender: FDA-Public Use
  Company Number: US-PFIZER INC-2020385295

PATIENT
  Age: 40 Year
  Sex: Male
  Weight: 82.55 kg

DRUGS (1)
  1. SILDENAFIL CITRATE. [Suspect]
     Active Substance: SILDENAFIL CITRATE
     Dosage: 50 MG
     Route: 048

REACTIONS (2)
  - Flushing [Unknown]
  - Inappropriate schedule of product administration [Unknown]
